FAERS Safety Report 7262404-1 (Version None)
Quarter: 2011Q1

REPORT INFORMATION
  Report Type: 
  Country: None (occurrence: None)
  Receive Date: 20110130
  Receipt Date: 20101117
  Transmission Date: 20110831
  Serious: No
  Sender: FDA-Public Use
  Company Number: US-ABBOTT-10P-163-0686137-00

PATIENT
  Age: 48 Year
  Sex: Female

DRUGS (3)
  1. UNKNOWN MEDICATION [Concomitant]
     Dosage: FOUR TABLETS A DAY
  2. HUMIRA [Suspect]
     Indication: CROHN'S DISEASE
     Dates: start: 20100801
  3. LIBEREX [Concomitant]
     Indication: IRRITABLE BOWEL SYNDROME

REACTIONS (2)
  - DRUG INEFFECTIVE [None]
  - CROHN'S DISEASE [None]
